FAERS Safety Report 7733329-X (Version None)
Quarter: 2011Q3

REPORT INFORMATION
  Report Type: 
  Country: None (occurrence: None)
  Receive Date: 20110907
  Receipt Date: 20110826
  Transmission Date: 20111222
  Serious: Yes (Hospitalization)
  Sender: FDA-Public Use
  Company Number: DE-UCBSA-040211

PATIENT
  Sex: Male

DRUGS (3)
  1. VIMPAT [Suspect]
     Dosage: DOSE: 2X100 MG
  2. CLONIDINE [Concomitant]
  3. ALPHA-BLOCKER [Concomitant]

REACTIONS (1)
  - ATRIOVENTRICULAR BLOCK [None]
